FAERS Safety Report 24836206 (Version 1)
Quarter: 2025Q1

REPORT INFORMATION
  Report Type: Spontaneous
  Country: FR (occurrence: FR)
  Receive Date: 20250113
  Receipt Date: 20250113
  Transmission Date: 20250409
  Serious: Yes (Death, Hospitalization, Other)
  Sender: AUROBINDO
  Company Number: FR-GRUNENTHAL-2024-138472

PATIENT
  Age: 21 Year
  Sex: Female

DRUGS (5)
  1. TRAMADOL [Suspect]
     Active Substance: TRAMADOL
     Indication: Product used for unknown indication
     Route: 065
  2. DIAZEPAM [Concomitant]
     Active Substance: DIAZEPAM
     Indication: Product used for unknown indication
     Route: 065
  3. ALPRAZOLAM [Concomitant]
     Active Substance: ALPRAZOLAM
     Indication: Product used for unknown indication
     Route: 065
  4. SERTRALINE [Concomitant]
     Active Substance: SERTRALINE HYDROCHLORIDE
     Indication: Product used for unknown indication
     Route: 065
  5. ESTRADIOL [Concomitant]
     Active Substance: ESTRADIOL
     Indication: Transgender hormonal therapy
     Route: 065

REACTIONS (7)
  - Hypoxic-ischaemic encephalopathy [Fatal]
  - Hypoglycaemia [Fatal]
  - Drug abuse [Unknown]
  - Cardio-respiratory arrest [Unknown]
  - Hyperlactacidaemia [Unknown]
  - Acidosis [Unknown]
  - Overdose [Unknown]
